FAERS Safety Report 14224498 (Version 2)
Quarter: 2018Q1

REPORT INFORMATION
  Report Type: Report from Study
  Country: US (occurrence: US)
  Receive Date: 20171127
  Receipt Date: 20180103
  Transmission Date: 20180508
  Serious: Yes (Death)
  Sender: FDA-Public Use
  Company Number: US-BIOGEN-2017BI00487825

PATIENT
  Sex: Male

DRUGS (1)
  1. TYSABRI [Suspect]
     Active Substance: NATALIZUMAB
     Indication: MULTIPLE SCLEROSIS
     Dosage: INFUSED OVER 1 HOUR
     Route: 065
     Dates: end: 20170515

REACTIONS (1)
  - Multiple sclerosis [Fatal]

NARRATIVE: CASE EVENT DATE: 2000
